FAERS Safety Report 24879977 (Version 1)
Quarter: 2025Q1

REPORT INFORMATION
  Report Type: Spontaneous
  Country: US (occurrence: None)
  Receive Date: 20250123
  Receipt Date: 20250123
  Transmission Date: 20250408
  Serious: Yes (Hospitalization)
  Sender: FDA-CTU
  Company Number: None

PATIENT
  Age: 55 Year
  Sex: Female

DRUGS (1)
  1. CUTAQUIG [Suspect]
     Active Substance: HUMAN IMMUNOGLOBULIN G
     Indication: Blood immunoglobulin G decreased
     Dosage: 12GM EVERY 2 WEEKS UNDER THE SKIN
     Route: 042
     Dates: start: 202306

REACTIONS (4)
  - Hypersensitivity [None]
  - Chest pain [None]
  - Arthralgia [None]
  - Dyspepsia [None]

NARRATIVE: CASE EVENT DATE: 20250116
